FAERS Safety Report 13070265 (Version 1)
Quarter: 2016Q4

REPORT INFORMATION
  Report Type: Spontaneous
  Country: GB (occurrence: GB)
  Receive Date: 20161228
  Receipt Date: 20161228
  Transmission Date: 20170207
  Serious: Yes (Other)
  Sender: FDA-Public Use
  Company Number: GB-MYLANLABS-2016M1042698

PATIENT

DRUGS (7)
  1. CLOZARIL [Suspect]
     Active Substance: CLOZAPINE
     Indication: AFFECT LABILITY
     Dosage: UNK
     Route: 048
     Dates: start: 20160609
  2. CLOZARIL [Suspect]
     Active Substance: CLOZAPINE
     Indication: PARKINSON^S DISEASE
     Dosage: 300 MG, QD
     Route: 048
     Dates: start: 2014, end: 20160203
  3. VENLAFAXINE [Concomitant]
     Active Substance: VENLAFAXINE HYDROCHLORIDE
     Indication: DEPRESSION
     Dosage: 225 MG, QD
     Route: 048
     Dates: start: 2011
  4. CLOZARIL [Suspect]
     Active Substance: CLOZAPINE
     Indication: SCHIZOPHRENIA
     Dosage: UNK
     Route: 048
     Dates: start: 20121120
  5. DIAZEPAM. [Concomitant]
     Active Substance: DIAZEPAM
     Indication: ANXIETY
     Dosage: 5 MG, QD
     Route: 048
     Dates: start: 2014
  6. CLOZARIL [Suspect]
     Active Substance: CLOZAPINE
     Indication: PERSONALITY DISORDER
  7. PIRENZEPINE [Concomitant]
     Active Substance: PIRENZEPINE
     Indication: EXTRAPYRAMIDAL DISORDER
     Dosage: 100 MG, QD
     Route: 048
     Dates: start: 2011

REACTIONS (7)
  - Anaemia [Recovered/Resolved]
  - Hepato-lenticular degeneration [Not Recovered/Not Resolved]
  - Choreoathetosis [Recovering/Resolving]
  - Movement disorder [Recovering/Resolving]
  - Thrombocytopenia [Unknown]
  - Constipation [Not Recovered/Not Resolved]
  - Product use issue [Unknown]

NARRATIVE: CASE EVENT DATE: 201602
